FAERS Safety Report 7755085-1 (Version None)
Quarter: 2011Q3

REPORT INFORMATION
  Report Type: 
  Country: None (occurrence: None)
  Receive Date: 20110914
  Receipt Date: 20110901
  Transmission Date: 20111222
  Serious: Yes (Hospitalization)
  Sender: FDA-Public Use
  Company Number: TPA2011A02970

PATIENT
  Age: 61 Year
  Sex: Female
  Weight: 89.8122 kg

DRUGS (5)
  1. METFORMIN HCL [Suspect]
  2. JANUVIA [Suspect]
  3. GLIMEPIRIDE [Suspect]
  4. STARLIX [Suspect]
  5. ACTOS [Suspect]
     Indication: DIABETES MELLITUS
     Dosage: 45 MG, 1 IN 1 D
     Dates: end: 20110301

REACTIONS (3)
  - RENAL DISORDER [None]
  - BLOOD GLUCOSE INCREASED [None]
  - OEDEMA PERIPHERAL [None]
